FAERS Safety Report 5238855-3 (Version None)
Quarter: 2007Q1

REPORT INFORMATION
  Report Type: 
  Country: None (occurrence: None)
  Receive Date: 20070209
  Receipt Date: 20070207
  Transmission Date: 20070707
  Serious: Yes (Other)
  Sender: FDA-Public Use
  Company Number: 95

PATIENT
  Age: 39 Year
  Sex: Male
  Weight: 105.2345 kg

DRUGS (1)
  1. PROVOCHOLINE [Suspect]
     Indication: ASTHMA
     Dosage: 3RD LEVEL OF PI (2.5 MG/ML)
     Dates: start: 20061102

REACTIONS (3)
  - FORCED EXPIRATORY VOLUME DECREASED [None]
  - LOSS OF CONSCIOUSNESS [None]
  - PROCEDURAL COMPLICATION [None]
